FAERS Safety Report 11269934 (Version 1)
Quarter: 2015Q3

REPORT INFORMATION
  Report Type: Spontaneous
  Country: US (occurrence: None)
  Receive Date: 20150713
  Receipt Date: 20150713
  Transmission Date: 20151125
  Serious: No
  Sender: FDA-Public Use
  Company Number: None

PATIENT
  Age: 14 Year
  Sex: Female
  Weight: 43.09 kg

DRUGS (4)
  1. PROTONIX [Suspect]
     Active Substance: PANTOPRAZOLE SODIUM
     Indication: EPIGASTRIC DISCOMFORT
     Route: 048
  2. SEIZURE MEDICATIONS [Concomitant]
  3. TUMS [Concomitant]
     Active Substance: CALCIUM CARBONATE
  4. CENTRUM [Concomitant]
     Active Substance: VITAMINS

REACTIONS (4)
  - Tardive dyskinesia [None]
  - Abdominal pain upper [None]
  - Abdominal distension [None]
  - Diarrhoea [None]
